FAERS Safety Report 22048457 (Version 1)
Quarter: 2023Q1

REPORT INFORMATION
  Report Type: Spontaneous
  Country: FR (occurrence: FR)
  Receive Date: 20230301
  Receipt Date: 20230301
  Transmission Date: 20230418
  Serious: Yes (Death, Life-Threatening, Hospitalization)
  Sender: FDA-Public Use
  Company Number: None

PATIENT
  Age: 56 Year
  Sex: Female
  Weight: 71 kg

DRUGS (6)
  1. QUETIAPINE [Suspect]
     Active Substance: QUETIAPINE
     Dosage: LONG COURSE
  2. DIAZEPAM [Suspect]
     Active Substance: DIAZEPAM
     Indication: Psychotic disorder
     Dosage: LONG COURSE
  3. OXCARBAZEPINE [Suspect]
     Active Substance: OXCARBAZEPINE
     Indication: Psychotic disorder
     Dosage: LONG COURSE
  4. LOXAPINE [Suspect]
     Active Substance: LOXAPINE
     Dosage: STRENGTH: 25 MG LONG COURSE
  5. ZOPICLONE [Suspect]
     Active Substance: ZOPICLONE
     Dosage: LONG COURSE
  6. TERALITHE [Suspect]
     Active Substance: LITHIUM CARBONATE
     Dosage: STRENGTH: 400 MG (PROLONGED-RELEASE SCORED TABLET)

REACTIONS (3)
  - Cardio-respiratory arrest [Recovered/Resolved with Sequelae]
  - Hypoxic-ischaemic encephalopathy [Fatal]
  - Choking [Recovered/Resolved with Sequelae]
